FAERS Safety Report 12526778 (Version 1)
Quarter: 2016Q3

REPORT INFORMATION
  Report Type: Spontaneous
  Country: US (occurrence: None)
  Receive Date: 20160701
  Receipt Date: 20160701
  Transmission Date: 20161109
  Serious: Yes (Other)
  Sender: FDA-Public Use
  Company Number: None

PATIENT
  Age: 44 Year
  Sex: Female
  Weight: 48.99 kg

DRUGS (1)
  1. URSODIOL. [Suspect]
     Active Substance: URSODIOL
     Indication: CHOLELITHIASIS
     Route: 048
     Dates: start: 20140725, end: 20160527

REACTIONS (3)
  - Abdominal pain [None]
  - Blood sodium decreased [None]
  - Pelvic pain [None]

NARRATIVE: CASE EVENT DATE: 20160531
